FAERS Safety Report 18692187 (Version 2)
Quarter: 2021Q1

REPORT INFORMATION
  Report Type: Report from Study
  Country: US (occurrence: US)
  Receive Date: 20210102
  Receipt Date: 20210123
  Transmission Date: 20210419
  Serious: No
  Sender: FDA-Public Use
  Company Number: NVSC2020US345639

PATIENT
  Age: 81 Year
  Sex: Male

DRUGS (2)
  1. ENTRESTO [Suspect]
     Active Substance: SACUBITRIL\VALSARTAN
     Indication: LEFT VENTRICULAR FAILURE
     Dosage: 50 MG, BID (24/26 MG)
     Route: 048
  2. ENTRESTO [Suspect]
     Active Substance: SACUBITRIL\VALSARTAN
     Dosage: 0.5 DF, BID
     Route: 048

REACTIONS (8)
  - Pain [Unknown]
  - Wrong technique in product usage process [Unknown]
  - Neck pain [Unknown]
  - Arthralgia [Unknown]
  - Underdose [Unknown]
  - Headache [Unknown]
  - Hypotension [Unknown]
  - Pain in extremity [Unknown]

NARRATIVE: CASE EVENT DATE: 202011
